FAERS Safety Report 5518530-8 (Version None)
Quarter: 2007Q4

REPORT INFORMATION
  Report Type: 
  Country: None (occurrence: None)
  Receive Date: 20071115
  Receipt Date: 20071106
  Transmission Date: 20080405
  Serious: Yes (Other)
  Sender: FDA-Public Use
  Company Number: IE-PFIZER INC-2007088530

PATIENT
  Sex: Male

DRUGS (1)
  1. HALCION [Suspect]
     Indication: SLEEP DISORDER

REACTIONS (1)
  - CORONARY ARTERY BYPASS [None]
